FAERS Safety Report 5013544-9 (Version None)
Quarter: 2006Q2

REPORT INFORMATION
  Report Type: 
  Country: None (occurrence: None)
  Receive Date: 20060530
  Receipt Date: 20060118
  Transmission Date: 20061013
  Serious: Yes (Death, Hospitalization)
  Sender: FDA-Public Use
  Company Number: ZA-BRISTOL-MYERS SQUIBB COMPANY-13251525

PATIENT
  Age: 62 Year
  Sex: Female

DRUGS (8)
  1. CDDP [Suspect]
     Indication: GASTRIC CANCER
     Route: 041
     Dates: start: 20051213, end: 20051213
  2. FLUOROURACIL [Suspect]
     Indication: GASTRIC CANCER
     Route: 041
     Dates: start: 20051213, end: 20051217
  3. TRAMACET [Concomitant]
     Indication: PAIN
     Route: 048
     Dates: start: 20050101
  4. NEXIUM [Concomitant]
     Indication: PROPHYLAXIS
     Route: 048
     Dates: start: 20051124
  5. ZOLPIDEM TARTRATE [Concomitant]
     Indication: INSOMNIA
     Route: 048
     Dates: start: 20051125, end: 20051201
  6. LAXETTE [Concomitant]
     Indication: CONSTIPATION
     Route: 048
     Dates: start: 20050101, end: 20051201
  7. DULCOLAX [Concomitant]
     Indication: CONSTIPATION
     Route: 054
     Dates: start: 20050101
  8. MYCOSTATIN [Concomitant]
     Indication: MOUTH ULCERATION
     Dates: start: 20051201, end: 20051227

REACTIONS (4)
  - HAEMORRHAGE [None]
  - MALIGNANT NEOPLASM PROGRESSION [None]
  - NEUTROPENIA [None]
  - RENAL FAILURE [None]
